FAERS Safety Report 8914688 (Version 2)
Quarter: 2013Q1

REPORT INFORMATION
  Report Type: Spontaneous
  Country: US (occurrence: US)
  Receive Date: 20121119
  Receipt Date: 20130122
  Transmission Date: 20140127
  Serious: Yes (Hospitalization, Other)
  Sender: FDA-Public Use
  Company Number: US-ASTRAZENECA-2012SE85596

PATIENT
  Age: 72 Year
  Sex: Male
  Weight: 95.3 kg

DRUGS (23)
  1. PLAVIX [Suspect]
     Route: 048
  2. METOPROLOL [Suspect]
     Indication: CARDIAC DISORDER
     Dosage: 25 MG CUT PILL IN H, BID
     Route: 048
  3. CRESTOR [Suspect]
     Indication: HYPERCHOLESTEROLAEMIA
     Route: 048
  4. CRESTOR [Suspect]
     Indication: CORONARY ARTERY DISEASE
     Route: 048
  5. CRESTOR [Suspect]
     Indication: HYPERCHOLESTEROLAEMIA
     Route: 048
     Dates: start: 2012
  6. CRESTOR [Suspect]
     Indication: CORONARY ARTERY DISEASE
     Route: 048
     Dates: start: 2012
  7. BRILINTA [Suspect]
     Indication: CORONARY ARTERY DISEASE
     Route: 048
     Dates: start: 201210
  8. BRILINTA [Suspect]
     Indication: CORONARY ARTERY DISEASE
     Route: 048
     Dates: start: 20121022, end: 20121122
  9. BRILINTA [Suspect]
     Indication: CORONARY ARTERY DISEASE
     Route: 048
     Dates: start: 20121022, end: 20121122
  10. UNKNOWN [Suspect]
     Indication: BLOOD CHOLESTEROL ABNORMAL
     Route: 065
  11. NITROGLYCERIN [Concomitant]
     Indication: CARDIAC DISORDER
     Dates: start: 1988
  12. NITROGLYCERIN [Concomitant]
     Indication: CHEST PAIN
     Dates: start: 1988
  13. COATED ASPIRIN [Concomitant]
     Indication: CARDIAC DISORDER
     Route: 048
  14. TAMULOSIN [Concomitant]
     Indication: PROSTATOMEGALY
     Route: 048
  15. LEVETIRACETAM [Concomitant]
     Indication: CONVULSION
     Route: 048
     Dates: start: 2001
  16. POTASSIUM CHLORIDE [Concomitant]
     Indication: ELECTROLYTE SUBSTITUTION THERAPY
     Route: 048
  17. LASIX [Concomitant]
     Indication: BLOOD PRESSURE
     Route: 048
     Dates: end: 201210
  18. LEVOTHYROXINE [Concomitant]
     Indication: THYROID DISORDER
     Route: 048
  19. ZYRTEC [Concomitant]
     Indication: UPPER-AIRWAY COUGH SYNDROME
     Route: 048
  20. LORATIDINE [Concomitant]
     Indication: UPPER-AIRWAY COUGH SYNDROME
     Route: 048
  21. ENALAPRIL [Concomitant]
     Route: 048
  22. FINASTERIDE [Concomitant]
     Indication: PROSTATOMEGALY
     Route: 048
  23. LATANOPROSE [Concomitant]
     Indication: GLAUCOMA
     Dosage: 0.005%, 1 DROP IN EACH EYE, BID
     Route: 047
     Dates: start: 2012

REACTIONS (6)
  - Skin exfoliation [Unknown]
  - Vascular graft occlusion [Unknown]
  - Myocardial infarction [Unknown]
  - Hypersensitivity [Unknown]
  - Rash [Recovered/Resolved]
  - Dyspnoea [Unknown]
